FAERS Safety Report 23025731 (Version 11)
Quarter: 2025Q1

REPORT INFORMATION
  Report Type: Spontaneous
  Country: US (occurrence: US)
  Receive Date: 20231004
  Receipt Date: 20250110
  Transmission Date: 20250409
  Serious: Yes (Hospitalization, Other)
  Sender: SANOFI AVENTIS
  Company Number: US-SA-SAC20230929000526

PATIENT
  Age: 87 Year
  Sex: Male

DRUGS (4)
  1. DUPIXENT [Suspect]
     Active Substance: DUPILUMAB
     Indication: Dermatitis atopic
     Route: 058
     Dates: start: 20230830, end: 20230830
  2. DUPIXENT [Suspect]
     Active Substance: DUPILUMAB
     Indication: Eczema
     Dosage: 300 MG, QOW
     Route: 058
     Dates: start: 20230913, end: 2023
  3. DUPIXENT [Suspect]
     Active Substance: DUPILUMAB
     Dosage: 300 MG, QOW
     Route: 058
     Dates: end: 202402
  4. DUPIXENT [Suspect]
     Active Substance: DUPILUMAB
     Dosage: 300 MG, QOW
     Route: 058
     Dates: start: 202403

REACTIONS (17)
  - Pneumonia [Recovered/Resolved]
  - Oesophageal obstruction [Unknown]
  - Carotid artery disease [Unknown]
  - Neoplasm malignant [Unknown]
  - Acne [Unknown]
  - Muscle spasms [Unknown]
  - Thinking abnormal [Unknown]
  - Foot deformity [Unknown]
  - Wound [Unknown]
  - Pain in extremity [Recovered/Resolved]
  - Myalgia [Unknown]
  - Pruritus [Recovering/Resolving]
  - Skin exfoliation [Unknown]
  - Rash [Recovering/Resolving]
  - Rash [Not Recovered/Not Resolved]
  - Dermatitis atopic [Unknown]
  - Drug ineffective [Unknown]

NARRATIVE: CASE EVENT DATE: 20230101
